FAERS Safety Report 7108348-7 (Version None)
Quarter: 2010Q4

REPORT INFORMATION
  Report Type: 
  Country: None (occurrence: None)
  Receive Date: 20101117
  Receipt Date: 20101110
  Transmission Date: 20110411
  Serious: Yes (Congenital Anomaly)
  Sender: FDA-Public Use
  Company Number: A0679349A

PATIENT
  Sex: Female

DRUGS (2)
  1. PAXIL [Suspect]
     Indication: DEPRESSION
     Dosage: 20MG PER DAY
     Dates: start: 19970101
  2. PRENATAL VITAMINS [Concomitant]

REACTIONS (6)
  - AFFECTIVE DISORDER [None]
  - ATRIAL SEPTAL DEFECT [None]
  - ATTENTION DEFICIT/HYPERACTIVITY DISORDER [None]
  - DRUG EXPOSURE DURING PREGNANCY [None]
  - PSYCHOTIC DISORDER [None]
  - PULMONARY VALVE STENOSIS [None]
